FAERS Safety Report 7456313-2 (Version None)
Quarter: 2011Q2

REPORT INFORMATION
  Report Type: 
  Country: None (occurrence: None)
  Receive Date: 20110503
  Receipt Date: 20110405
  Transmission Date: 20111010
  Serious: Yes (Life-Threatening, Hospitalization)
  Sender: FDA-Public Use
  Company Number: US-BAYER-201039910NA

PATIENT
  Age: 49 Year
  Sex: Female
  Weight: 88.889 kg

DRUGS (3)
  1. ACETAMINOPHEN [Concomitant]
     Dosage: 500 MG, QD
     Route: 048
  2. YAZ [Suspect]
     Indication: PRODUCT USED FOR UNKNOWN INDICATION
     Dosage: UNK
     Dates: start: 20090401, end: 20090901
  3. MINOCYCLINE [Concomitant]
     Dosage: 100 MG, UNK
     Route: 048

REACTIONS (3)
  - DEEP VEIN THROMBOSIS [None]
  - PULMONARY EMBOLISM [None]
  - ORGAN FAILURE [None]
